FAERS Safety Report 7280113-X (Version None)
Quarter: 2011Q1

REPORT INFORMATION
  Report Type: 
  Country: None (occurrence: None)
  Receive Date: 20110208
  Receipt Date: 20110201
  Transmission Date: 20110831
  Serious: Yes (Other)
  Sender: FDA-Public Use
  Company Number: US-US-EMD SERONO, INC.-7034990

PATIENT
  Sex: Female
  Weight: 54 kg

DRUGS (3)
  1. REBIF [Suspect]
     Indication: MULTIPLE SCLEROSIS
     Route: 058
     Dates: start: 20030101, end: 20080101
  2. REBIF [Suspect]
     Route: 058
     Dates: start: 20101122, end: 20101201
  3. REBIF [Suspect]
     Route: 058
     Dates: start: 20101201, end: 20110107

REACTIONS (4)
  - RHEUMATOID ARTHRITIS [None]
  - DRUG INEFFECTIVE [None]
  - NASOPHARYNGITIS [None]
  - INFLUENZA [None]
